FAERS Safety Report 15590724 (Version 2)
Quarter: 2018Q4

REPORT INFORMATION
  Report Type: Spontaneous
  Country: RO (occurrence: RO)
  Receive Date: 20181106
  Receipt Date: 20181116
  Transmission Date: 20190205
  Serious: Yes (Hospitalization, Other)
  Sender: FDA-Public Use
  Company Number: PHHY2018RO145645

PATIENT
  Age: 27 Year
  Sex: Female

DRUGS (12)
  1. VINCRISTINE [Suspect]
     Active Substance: VINCRISTINE
     Indication: BURKITT^S LYMPHOMA STAGE III
     Dosage: UNK (AS A PART OF HYPER-CVAD REGIMEN)
     Route: 065
  2. RITUXIMAB. [Suspect]
     Active Substance: RITUXIMAB
     Indication: BURKITT^S LYMPHOMA STAGE III
     Dosage: UNK
     Route: 065
  3. ADRIAMYCIN [Suspect]
     Active Substance: DOXORUBICIN HYDROCHLORIDE
     Indication: BURKITT^S LYMPHOMA STAGE III
     Dosage: UNK (AS A PART OF HYPER-CVAD REGIMEN)
     Route: 065
  4. RALTEGRAVIR. [Concomitant]
     Active Substance: RALTEGRAVIR
     Indication: ACQUIRED IMMUNODEFICIENCY SYNDROME
     Dosage: UNK
     Route: 065
  5. DEXAMETHASONE. [Suspect]
     Active Substance: DEXAMETHASONE
     Indication: BURKITT^S LYMPHOMA STAGE III
     Dosage: UNK (AS A PART OF HYPER-CVAD REGIMEN)
     Route: 065
  6. ETRAVIRINE [Concomitant]
     Active Substance: ETRAVIRINE
     Indication: ANTIRETROVIRAL THERAPY
  7. DOXORUBICIN [Suspect]
     Active Substance: DOXORUBICIN
     Indication: BURKITT^S LYMPHOMA
     Dosage: UNK
     Route: 065
  8. CYCLOPHOSPHAMIDE. [Suspect]
     Active Substance: CYCLOPHOSPHAMIDE
     Indication: BURKITT^S LYMPHOMA STAGE III
     Dosage: UNK (AS A PART OF HYPER-CVAD REGIMEN)
     Route: 065
  9. DARUNAVIR [Concomitant]
     Active Substance: DARUNAVIR
     Indication: ACQUIRED IMMUNODEFICIENCY SYNDROME
     Dosage: UNK
     Route: 065
  10. RALTEGRAVIR. [Concomitant]
     Active Substance: RALTEGRAVIR
     Indication: ANTIRETROVIRAL THERAPY
  11. ETRAVIRINE [Concomitant]
     Active Substance: ETRAVIRINE
     Indication: ACQUIRED IMMUNODEFICIENCY SYNDROME
     Dosage: UNK
     Route: 065
  12. DARUNAVIR [Concomitant]
     Active Substance: DARUNAVIR
     Indication: ANTIRETROVIRAL THERAPY

REACTIONS (14)
  - Nystagmus [Unknown]
  - Cholestasis [Unknown]
  - Pyrexia [Unknown]
  - Depression [Unknown]
  - Cough [Unknown]
  - Haematotoxicity [Unknown]
  - Thrombocytopenia [Unknown]
  - Vertigo [Unknown]
  - Gait disturbance [Unknown]
  - Pneumonia [Recovered/Resolved]
  - Hepatocellular injury [Unknown]
  - Chest pain [Unknown]
  - Pyrexia [Unknown]
  - Generalised anxiety disorder [Unknown]

NARRATIVE: CASE EVENT DATE: 2014
